FAERS Safety Report 9525471 (Version 2)
Quarter: 2013Q3

REPORT INFORMATION
  Report Type: Spontaneous
  Country: US (occurrence: None)
  Receive Date: 20130912
  Receipt Date: 20130918
  Transmission Date: 20140515
  Serious: Yes (Hospitalization)
  Sender: FDA-Public Use
  Company Number: 2013-1459

PATIENT
  Age: 71 Year
  Sex: Female

DRUGS (2)
  1. CARFILZOMIB [Suspect]
     Indication: PLASMA CELL MYELOMA
     Dosage: (2 DAYS/ WEEK / 3 WEEKS)
     Route: 042
     Dates: start: 20130625, end: 20130828
  2. DOXIL [Concomitant]

REACTIONS (6)
  - Pyrexia [None]
  - Cough [None]
  - Nasal congestion [None]
  - Haemoglobin decreased [None]
  - Urinary tract infection [None]
  - Pneumonia [None]
